FAERS Safety Report 12965647 (Version 1)
Quarter: 2016Q4

REPORT INFORMATION
  Report Type: Spontaneous
  Country: CA (occurrence: CA)
  Receive Date: 20161122
  Receipt Date: 20161122
  Transmission Date: 20170207
  Serious: Yes (Other)
  Sender: FDA-Public Use
  Company Number: CA-BAYER-2016-221729

PATIENT
  Age: 24 Year
  Sex: Female
  Weight: 64.85 kg

DRUGS (7)
  1. PENTASA [Suspect]
     Active Substance: MESALAMINE
     Dosage: UNK
     Dates: start: 2011, end: 2013
  2. ELAVIL [Concomitant]
     Active Substance: AMITRIPTYLINE HYDROCHLORIDE
     Dosage: UNK UNK, PRN
     Route: 048
  3. HUMIRA [Suspect]
     Active Substance: ADALIMUMAB
     Dosage: 40 MG, UNK
     Route: 058
     Dates: start: 2014, end: 20161105
  4. METHOTREXATE. [Suspect]
     Active Substance: METHOTREXATE
     Dosage: UNK
     Route: 048
     Dates: start: 2011
  5. ENTOCORT [Suspect]
     Active Substance: BUDESONIDE
     Dosage: UNK
     Dates: start: 2011
  6. CIPRO [Suspect]
     Active Substance: CIPROFLOXACIN HYDROCHLORIDE
     Dosage: UNK
     Dates: start: 2011
  7. FLAGYL [Suspect]
     Active Substance: METRONIDAZOLE\METRONIDAZOLE HYDROCHLORIDE
     Dosage: UNK
     Dates: start: 2011

REACTIONS (2)
  - Crohn^s disease [Unknown]
  - Anxiety [Unknown]

NARRATIVE: CASE EVENT DATE: 2011
